FAERS Safety Report 12886449 (Version 1)
Quarter: 2016Q4

REPORT INFORMATION
  Report Type: Spontaneous
  Country: HU (occurrence: HU)
  Receive Date: 20161026
  Receipt Date: 20161026
  Transmission Date: 20170207
  Serious: Yes (Other)
  Sender: FDA-Public Use
  Company Number: HU-PFIZER INC-2016490720

PATIENT
  Sex: Female

DRUGS (1)
  1. DALACIN [Suspect]
     Active Substance: CLINDAMYCIN
     Indication: ARTHROPOD BITE
     Dosage: UNK

REACTIONS (3)
  - Diarrhoea [Unknown]
  - Anal haemorrhage [Not Recovered/Not Resolved]
  - Colitis [Not Recovered/Not Resolved]
